FAERS Safety Report 26203973 (Version 1)
Quarter: 2025Q4

REPORT INFORMATION
  Report Type: Spontaneous
  Country: US (occurrence: US)
  Receive Date: 20251226
  Receipt Date: 20251226
  Transmission Date: 20260118
  Serious: Yes (Death, Other)
  Sender: AMGEN
  Company Number: US-AMGEN-USASP2025251380

PATIENT

DRUGS (4)
  1. PREDNISONE [Suspect]
     Active Substance: PREDNISONE
     Indication: Chronic graft versus host disease
     Dosage: UNK, MG/KG, QD
     Route: 065
  2. BELUMOSUDIL [Suspect]
     Active Substance: BELUMOSUDIL
     Indication: Chronic graft versus host disease
     Dosage: 200 MILLIGRAM, QD
     Route: 065
  3. BELUMOSUDIL [Suspect]
     Active Substance: BELUMOSUDIL
     Dosage: 200 MILLIGRAM, BID
     Route: 065
  4. RUXOLITINIB [Suspect]
     Active Substance: RUXOLITINIB
     Indication: Chronic graft versus host disease
     Dosage: UNK
     Route: 065

REACTIONS (39)
  - Death [Fatal]
  - Graft versus host disease [Fatal]
  - Lung disorder [Fatal]
  - Cytomegalovirus viraemia [Fatal]
  - Cytomegalovirus infection [Fatal]
  - Squamous cell carcinoma of head and neck [Fatal]
  - Leukaemia recurrent [Fatal]
  - Non-Hodgkin^s lymphoma [Unknown]
  - Plasma cell myeloma [Unknown]
  - Neuropathy peripheral [Unknown]
  - Cytopenia [Unknown]
  - Gastroenteritis norovirus [Unknown]
  - Staphylococcal bacteraemia [Unknown]
  - Enterococcal bacteraemia [Unknown]
  - Systemic candida [Unknown]
  - Serratia infection [Unknown]
  - Pneumocystis jirovecii pneumonia [Unknown]
  - Clostridium difficile colitis [Unknown]
  - Aspergillus infection [Unknown]
  - Scedosporium infection [Unknown]
  - Pulmonary nocardiosis [Unknown]
  - Basal cell carcinoma [Unknown]
  - Klebsiella bacteraemia [Unknown]
  - Constipation [Unknown]
  - Anaemia [Unknown]
  - Respiratory syncytial virus infection [Unknown]
  - COVID-19 [Unknown]
  - Nausea [Unknown]
  - Malassezia infection [Unknown]
  - Abdominal distension [Unknown]
  - Alanine aminotransferase increased [Unknown]
  - Blood bilirubin increased [Unknown]
  - Aspartate aminotransferase increased [Unknown]
  - Blood alkaline phosphatase increased [Unknown]
  - Herpes simplex [Unknown]
  - Rhinovirus infection [Unknown]
  - Enterovirus infection [Unknown]
  - Influenza [Unknown]
  - Parainfluenzae virus infection [Unknown]
